FAERS Safety Report 6458430-2 (Version None)
Quarter: 2009Q4

REPORT INFORMATION
  Report Type: 
  Country: None (occurrence: None)
  Receive Date: 20091125
  Receipt Date: 20091118
  Transmission Date: 20100525
  Serious: Yes (Hospitalization)
  Sender: FDA-Public Use
  Company Number: FR-SANOFI-AVENTIS-200912914FR

PATIENT
  Age: 64 Year
  Sex: Male

DRUGS (6)
  1. CEFOTAXIME SODIUM [Suspect]
     Indication: KLEBSIELLA INFECTION
     Route: 042
     Dates: start: 20090623, end: 20090727
  2. CEFOTAXIME SODIUM [Suspect]
     Dates: start: 20090803, end: 20090811
  3. OFLOXACIN [Suspect]
     Indication: KLEBSIELLA INFECTION
     Dosage: DOSE UNIT: 200 MG
     Route: 042
     Dates: start: 20090623, end: 20090724
  4. FLAGYL [Concomitant]
     Dates: start: 20090623, end: 20090716
  5. VANCOMYCIN [Concomitant]
     Dates: start: 20090625, end: 20090714
  6. TRIFLUCAN [Concomitant]
     Dates: start: 20090701, end: 20090716

REACTIONS (2)
  - HAEMOLYTIC ANAEMIA [None]
  - THROMBOTIC THROMBOCYTOPENIC PURPURA [None]
